FAERS Safety Report 4760837-6 (Version None)
Quarter: 2005Q3

REPORT INFORMATION
  Report Type: 
  Country: None (occurrence: None)
  Receive Date: 20050826
  Receipt Date: 20041124
  Transmission Date: 20060218
  Serious: Yes (Death)
  Sender: FDA-Public Use
  Company Number: USA-2004-0017828

PATIENT
  Age: 40 Year
  Sex: Female
  Weight: 95.2 kg

DRUGS (5)
  1. OXYCONTIN [Suspect]
     Dosage: UNKNOWN
     Route: 065
  2. CODEINE SUL TAB [Suspect]
     Dosage: UNKNOWN
     Route: 065
  3. DIPHENHYDRAMINE HCL [Suspect]
     Dosage: UNKNOWN
     Route: 065
  4. ZOLPIDEM TARTRATE [Suspect]
     Dosage: UNKNOWN
     Route: 065
  5. PROPOXYPHENE HCL [Suspect]
     Dosage: UNKNOWN
     Route: 065

REACTIONS (1)
  - MULTIPLE DRUG OVERDOSE [None]
